FAERS Safety Report 24542596 (Version 2)
Quarter: 2024Q4

REPORT INFORMATION
  Report Type: Report from Study
  Country: US (occurrence: US)
  Receive Date: 20241024
  Receipt Date: 20241026
  Transmission Date: 20250115
  Serious: Yes (Hospitalization)
  Sender: ABBVIE
  Company Number: US-ABBVIE-5968640

PATIENT
  Age: 79 Year
  Sex: Male
  Weight: 79 kg

DRUGS (3)
  1. SKYRIZI [Suspect]
     Active Substance: RISANKIZUMAB-RZAA
     Indication: Crohn^s disease
     Route: 058
     Dates: start: 2022, end: 20240317
  2. BUDESONIDE [Concomitant]
     Active Substance: BUDESONIDE
     Indication: Crohn^s disease
  3. SKYRIZI [Suspect]
     Active Substance: RISANKIZUMAB-RZAA
     Indication: Crohn^s disease
     Route: 042

REACTIONS (15)
  - Dysphonia [Not Recovered/Not Resolved]
  - Feeding disorder [Recovered/Resolved]
  - Arrhythmia [Recovering/Resolving]
  - Dyspnoea [Recovered/Resolved]
  - Nausea [Recovered/Resolved]
  - Dysuria [Recovering/Resolving]
  - Chest discomfort [Recovered/Resolved]
  - Diarrhoea [Recovering/Resolving]
  - Diplopia [Recovering/Resolving]
  - Extrasystoles [Recovered/Resolved]
  - Renal function test abnormal [Recovering/Resolving]
  - Vomiting [Recovered/Resolved]
  - Liver function test abnormal [Recovering/Resolving]
  - Dehydration [Recovered/Resolved]
  - Dizziness [Unknown]

NARRATIVE: CASE EVENT DATE: 20240301
